FAERS Safety Report 23592565 (Version 1)
Quarter: 2024Q1

REPORT INFORMATION
  Report Type: Spontaneous
  Country: US (occurrence: US)
  Receive Date: 20240304
  Receipt Date: 20240304
  Transmission Date: 20240409
  Serious: No
  Sender: FDA-Public Use
  Company Number: US-PERRIGO-23US006491

PATIENT
  Age: 58 Year
  Sex: Male
  Weight: 90.703 kg

DRUGS (1)
  1. NICOTINE POLACRILEX [Suspect]
     Active Substance: NICOTINE
     Indication: Smoking cessation therapy
     Dosage: 4 TO 6 MG, QD
     Route: 002
     Dates: start: 20221101

REACTIONS (3)
  - Pruritus [Recovering/Resolving]
  - Flushing [Recovering/Resolving]
  - Expired product administered [Unknown]

NARRATIVE: CASE EVENT DATE: 20230401
